FAERS Safety Report 5407158-6 (Version None)
Quarter: 2007Q3

REPORT INFORMATION
  Report Type: 
  Country: None (occurrence: None)
  Receive Date: 20070803
  Receipt Date: 20070803
  Transmission Date: 20080115
  Serious: No
  Sender: FDA-Public Use
  Company Number: None

PATIENT
  Age: 46 Year
  Sex: Female
  Weight: 79.3795 kg

DRUGS (2)
  1. DULOXETINE HYDROCHLORIDE 60 MG SUN PHARMACEUTICAL INDUSTRIES [Suspect]
     Indication: ANXIETY
     Dosage: 1 TABLET 1XDAY PO
     Route: 048
  2. DULOXETINE HYDROCHLORIDE 60 MG SUN PHARMACEUTICAL INDUSTRIES [Suspect]
     Indication: SLEEP DISORDER
     Dosage: 1 TABLET 1XDAY PO
     Route: 048

REACTIONS (2)
  - LEGAL PROBLEM [None]
  - PHARMACEUTICAL PRODUCT COMPLAINT [None]
